FAERS Safety Report 23027039 (Version 1)
Quarter: 2023Q4

REPORT INFORMATION
  Report Type: Spontaneous
  Country: US (occurrence: US)
  Receive Date: 20231004
  Receipt Date: 20231004
  Transmission Date: 20240109
  Serious: Yes (Other)
  Sender: FDA-Public Use
  Company Number: US-SA-SAC20231003001799

PATIENT
  Age: 32 Year
  Sex: Male

DRUGS (4)
  1. ALPROLIX [Suspect]
     Active Substance: EFTRENONACOG ALFA
     Indication: Factor IX deficiency
     Dosage: 4500 U, QW (STRENGTH: 1000 UNITS)
     Route: 042
     Dates: start: 202302
  2. ALPROLIX [Suspect]
     Active Substance: EFTRENONACOG ALFA
     Indication: Factor IX deficiency
     Dosage: 4500 U, QW (STRENGTH: 1000 UNITS)
     Route: 042
     Dates: start: 202302
  3. ALPROLIX [Suspect]
     Active Substance: EFTRENONACOG ALFA
     Dosage: 4500 U, QW (STRENGTH: 3000 UNITS)
     Route: 042
     Dates: start: 2023
  4. ALPROLIX [Suspect]
     Active Substance: EFTRENONACOG ALFA
     Dosage: 4500 U, QW (STRENGTH: 3000 UNITS)
     Route: 042
     Dates: start: 2023

REACTIONS (1)
  - Haemorrhage [Recovered/Resolved]

NARRATIVE: CASE EVENT DATE: 20230912
